FAERS Safety Report 10094141 (Version 1)
Quarter: 2014Q2

REPORT INFORMATION
  Report Type: Report from Study
  Country: US (occurrence: US)
  Receive Date: 20140422
  Receipt Date: 20140422
  Transmission Date: 20141212
  Serious: Yes (Other)
  Sender: FDA-Public Use
  Company Number: US-BRISTOL-MYERS SQUIBB COMPANY-20621132

PATIENT
  Age: 63 Year
  Sex: Female

DRUGS (2)
  1. ABATACEPT SUBQ INJECTION 125MG/ML [Suspect]
     Indication: RHEUMATOID ARTHRITIS
     Dosage: 1 DF=125 MG/ML
     Route: 058
     Dates: start: 201308
  2. VITAMIN B12 [Concomitant]
     Dosage: INJ/SQ

REACTIONS (2)
  - Surgery [Unknown]
  - Visual acuity reduced [Unknown]
